FAERS Safety Report 8785733 (Version 2)
Quarter: 2012Q4

REPORT INFORMATION
  Report Type: 
  Country: CA (occurrence: CA)
  Receive Date: 20120914
  Receipt Date: 20121018
  Transmission Date: 20130627
  Serious: Yes (Life-Threatening)
  Sender: FDA-Public Use
  Company Number: CA-JNJFOC-20120905685

PATIENT
  Sex: Male
  Weight: 80.74 kg

DRUGS (6)
  1. STELARA [Suspect]
     Indication: PSORIASIS
     Route: 058
     Dates: start: 2011, end: 20110924
  2. ALTACE [Concomitant]
     Route: 065
  3. NEXIUM [Concomitant]
     Route: 065
  4. METFORMIN [Concomitant]
     Route: 065
  5. GLYBURIDE [Concomitant]
     Route: 065
  6. LIPITOR [Concomitant]
     Route: 065

REACTIONS (1)
  - Acute coronary syndrome [Recovered/Resolved]
